FAERS Safety Report 16302353 (Version 1)
Quarter: 2019Q2

REPORT INFORMATION
  Report Type: Spontaneous
  Country: US (occurrence: US)
  Receive Date: 20190513
  Receipt Date: 20190513
  Transmission Date: 20190711
  Serious: No
  Sender: FDA-Public Use
  Company Number: US-JNJFOC-20190441349

PATIENT
  Sex: Female
  Weight: 32.66 kg

DRUGS (2)
  1. CHILDRENS MOTRIN [Suspect]
     Active Substance: IBUPROFEN
     Indication: PYREXIA
     Dosage: 2 TABLESPOONS FULL JUST EVERY COUPLE OF MONTHS
     Route: 048
  2. CHILDRENS MOTRIN [Suspect]
     Active Substance: IBUPROFEN
     Indication: HEADACHE
     Dosage: 2 TABLESPOONS FULL JUST EVERY COUPLE OF MONTHS
     Route: 048

REACTIONS (2)
  - Product administered to patient of inappropriate age [Unknown]
  - Expired product administered [Unknown]
